FAERS Safety Report 6938904-8 (Version None)
Quarter: 2010Q3

REPORT INFORMATION
  Report Type: 
  Country: None (occurrence: None)
  Receive Date: 20100824
  Receipt Date: 20100817
  Transmission Date: 20110219
  Serious: Yes (Death, Hospitalization)
  Sender: FDA-Public Use
  Company Number: A0877141A

PATIENT
  Age: 60 Year
  Sex: Male

DRUGS (6)
  1. PROMACTA [Suspect]
     Dosage: 50MG PER DAY
     Route: 048
     Dates: start: 20100416, end: 20100703
  2. INTERFERON ALFA [Concomitant]
     Dates: start: 20100529
  3. OMEPRAZOLE [Concomitant]
     Dosage: 20MG TWICE PER DAY
  4. GLYBURIDE [Concomitant]
     Dosage: 5MG TWICE PER DAY
  5. RIBAVIRIN [Concomitant]
     Dosage: 600MG TWICE PER DAY
  6. NEUPOGEN [Concomitant]
     Dosage: 480MCG WEEKLY
     Route: 058

REACTIONS (6)
  - ASPARTATE AMINOTRANSFERASE INCREASED [None]
  - BLOOD GLUCOSE DECREASED [None]
  - LETHARGY [None]
  - MENINGITIS BACTERIAL [None]
  - MENTAL STATUS CHANGES [None]
  - OVERDOSE [None]
